FAERS Safety Report 7983994-7 (Version None)
Quarter: 2011Q4

REPORT INFORMATION
  Report Type: 
  Country: None (occurrence: None)
  Receive Date: 20111216
  Receipt Date: 20111212
  Transmission Date: 20120403
  Serious: Yes (Other)
  Sender: FDA-Public Use
  Company Number: US-ASTRAZENECA-2009UW16282

PATIENT
  Sex: Female

DRUGS (10)
  1. SEROQUEL [Suspect]
     Dosage: 25 TO 200 MG
     Route: 048
     Dates: start: 20060202
  2. AMBIEN [Concomitant]
     Dates: start: 20060131
  3. ALPRAZOLAM [Concomitant]
     Dates: start: 20060213
  4. ALBUTEROL [Concomitant]
     Dates: start: 20060325
  5. TRAZODONE HCL [Concomitant]
     Dates: start: 20060202
  6. HYDROCODONE BITARTRATE AND ACETAMINOPHEN [Concomitant]
     Dosage: 10/500
     Dates: start: 20060120
  7. BROMFENEX-PD [Concomitant]
     Dates: start: 20060314
  8. CARISOPRODOL [Concomitant]
     Dates: start: 20060120
  9. OXYCODONE HCL [Concomitant]
     Dates: start: 20060609
  10. TEMAZEPAM [Concomitant]
     Dates: start: 20060727

REACTIONS (3)
  - CONVULSION [None]
  - DIABETES MELLITUS [None]
  - DRUG DOSE OMISSION [None]
